FAERS Safety Report 22361567 (Version 1)
Quarter: 2023Q2

REPORT INFORMATION
  Report Type: Spontaneous
  Country: US (occurrence: None)
  Receive Date: 20230524
  Receipt Date: 20230524
  Transmission Date: 20230721
  Serious: Yes (Hospitalization)
  Sender: FDA-Public Use
  Company Number: None

PATIENT
  Age: 62 Year
  Sex: Male
  Weight: 111.1 kg

DRUGS (7)
  1. MYCOPHENOLIC ACID [Suspect]
     Active Substance: MYCOPHENOLIC ACID
     Indication: Prophylaxis against transplant rejection
     Dosage: FREQUENCY : TWICE A DAY;?
     Route: 048
  2. TACROLIMUS [Suspect]
     Active Substance: TACROLIMUS
     Indication: Prophylaxis against transplant rejection
     Dosage: FREQUENCY : TWICE A DAY;?
     Route: 048
  3. FAMOTIDINE [Concomitant]
     Active Substance: FAMOTIDINE
  4. labetalol 200mg [Concomitant]
  5. PREDNISONE [Concomitant]
     Active Substance: PREDNISONE
  6. bactrim 400-80mg [Concomitant]
  7. VALACYCLOVIR HYDROCHLORIDE [Concomitant]
     Active Substance: VALACYCLOVIR HYDROCHLORIDE

REACTIONS (3)
  - Diabetes mellitus inadequate control [None]
  - Septic shock [None]
  - Respiratory failure [None]

NARRATIVE: CASE EVENT DATE: 20230417
